FAERS Safety Report 26154560 (Version 1)
Quarter: 2025Q4

REPORT INFORMATION
  Report Type: Spontaneous
  Country: AU (occurrence: AU)
  Receive Date: 20251215
  Receipt Date: 20251215
  Transmission Date: 20260118
  Serious: Yes (Hospitalization, Other)
  Sender: BRISTOL-MYERS SQUIBB COMPANY
  Company Number: AU-BRISTOL-MYERS SQUIBB COMPANY-2025-167399

PATIENT
  Age: 88 Year
  Sex: Male

DRUGS (9)
  1. ELIQUIS [Suspect]
     Active Substance: APIXABAN
     Indication: Pulmonary embolism
     Route: 048
     Dates: start: 20250730, end: 20250808
  2. ELIQUIS [Suspect]
     Active Substance: APIXABAN
     Indication: Atrial fibrillation
     Route: 048
     Dates: start: 20250814
  3. ACORAMIDIS [Suspect]
     Active Substance: ACORAMIDIS
     Indication: Cardiac amyloidosis
  4. ATORVASTATIN [Concomitant]
     Active Substance: ATORVASTATIN
     Indication: Dyslipidaemia
     Route: 048
  5. FARXIGA [Concomitant]
     Active Substance: DAPAGLIFLOZIN PROPANEDIOL
     Indication: Cardiac failure
     Route: 048
     Dates: start: 20250618
  6. FUROSEMIDE [Concomitant]
     Active Substance: FUROSEMIDE
     Indication: Cardiac failure
     Route: 048
     Dates: start: 20250618
  7. Mega B Plus [Concomitant]
     Indication: Product used for unknown indication
     Route: 048
     Dates: start: 20241001, end: 20250809
  8. ACETAMINOPHEN [Concomitant]
     Active Substance: ACETAMINOPHEN
     Indication: Back pain
     Route: 048
     Dates: start: 20000101
  9. TEMAZEPAM [Concomitant]
     Active Substance: TEMAZEPAM
     Indication: Insomnia
     Dosage: AS NEEDED (PRN)
     Dates: start: 20250312

REACTIONS (6)
  - Rectal haemorrhage [Recovered/Resolved]
  - Dizziness [Unknown]
  - Tachycardia [Unknown]
  - Gastrointestinal angiodysplasia [Unknown]
  - Off label use [Unknown]
  - Hyposplenism [Unknown]

NARRATIVE: CASE EVENT DATE: 20250808
